FAERS Safety Report 5626137-7 (Version None)
Quarter: 2008Q1

REPORT INFORMATION
  Report Type: 
  Country: None (occurrence: None)
  Receive Date: 20080213
  Receipt Date: 20080213
  Transmission Date: 20080703
  Serious: Yes (Life-Threatening, Hospitalization, Disabling, Other)
  Sender: FDA-Public Use
  Company Number: None

PATIENT
  Sex: Female

DRUGS (1)
  1. INTERFERON 200 [Suspect]
     Dosage: ON THE MEDICAL RECORDS
     Dates: start: 20030919

REACTIONS (2)
  - ADVERSE REACTION [None]
  - ORAL INTAKE REDUCED [None]
